FAERS Safety Report 8919345 (Version 1)
Quarter: 2012Q4

REPORT INFORMATION
  Report Type: 
  Country: US (occurrence: US)
  Receive Date: 20121121
  Receipt Date: 20121121
  Transmission Date: 20130627
  Serious: No
  Sender: FDA-Public Use
  Company Number: US-PFIZER INC-2012288219

PATIENT
  Age: 63 Year
  Sex: Male
  Weight: 100 kg

DRUGS (2)
  1. ADVIL [Suspect]
     Indication: PAINFUL FEET
     Dosage: UNK (unknown number of 200mg capsules), as needed
     Route: 048
  2. ADVIL [Suspect]
     Indication: GOUT

REACTIONS (3)
  - Drug ineffective [Recovered/Resolved]
  - Incorrect dose administered [Unknown]
  - Blood uric acid increased [Unknown]
